FAERS Safety Report 24822736 (Version 1)
Quarter: 2025Q1

REPORT INFORMATION
  Report Type: Spontaneous
  Country: FR (occurrence: FR)
  Receive Date: 20250109
  Receipt Date: 20250109
  Transmission Date: 20250409
  Serious: Yes (Hospitalization, Other)
  Sender: ALEXION PHARMACEUTICALS
  Company Number: FR-CHEPLA-2025000041

PATIENT
  Age: 35 Year

DRUGS (14)
  1. QUETIAPINE [Suspect]
     Active Substance: QUETIAPINE
     Indication: Intentional overdose
     Dosage: 1000 MILLIGRAM, QD
  2. QUETIAPINE [Suspect]
     Active Substance: QUETIAPINE
     Dosage: 1000 MILLIGRAM, QD
     Route: 048
  3. QUETIAPINE [Suspect]
     Active Substance: QUETIAPINE
     Dosage: 1000 MILLIGRAM, QD
  4. QUETIAPINE [Suspect]
     Active Substance: QUETIAPINE
     Dosage: 1000 MILLIGRAM, QD
     Route: 048
  5. PAROXETINE [Suspect]
     Active Substance: PAROXETINE
     Indication: Intentional overdose
     Dosage: 280 MILLIGRAM, QD
  6. PAROXETINE [Suspect]
     Active Substance: PAROXETINE
     Dosage: 280 MILLIGRAM, QD
     Route: 048
  7. PAROXETINE [Suspect]
     Active Substance: PAROXETINE
     Dosage: 280 MILLIGRAM, QD
  8. PAROXETINE [Suspect]
     Active Substance: PAROXETINE
     Dosage: 280 MILLIGRAM, QD
     Route: 048
  9. ALPRAZOLAM [Concomitant]
     Active Substance: ALPRAZOLAM
     Dosage: 15 MILLIGRAM, QD
     Route: 048
  10. ALPRAZOLAM [Concomitant]
     Active Substance: ALPRAZOLAM
     Dosage: 15 MILLIGRAM, QD
  11. ACETONE [Concomitant]
     Active Substance: ACETONE
     Route: 065
  12. ACETONE [Concomitant]
     Active Substance: ACETONE
     Route: 065
  13. ISOPROPYL ALCOHOL [Concomitant]
     Active Substance: ISOPROPYL ALCOHOL
     Route: 065
  14. ISOPROPYL ALCOHOL [Concomitant]
     Active Substance: ISOPROPYL ALCOHOL
     Route: 065

REACTIONS (2)
  - Poisoning deliberate [Recovered/Resolved]
  - Altered state of consciousness [Recovered/Resolved]
